FAERS Safety Report 14531059 (Version 1)
Quarter: 2018Q1

REPORT INFORMATION
  Report Type: Spontaneous
  Country: FI (occurrence: FI)
  Receive Date: 20180214
  Receipt Date: 20180214
  Transmission Date: 20180509
  Serious: Yes (Other)
  Sender: FDA-Public Use
  Company Number: FI-UCBSA-2018004722

PATIENT
  Age: 83 Year
  Sex: Female

DRUGS (1)
  1. CIMZIA [Suspect]
     Active Substance: CERTOLIZUMAB PEGOL
     Indication: ANKYLOSING SPONDYLITIS
     Dosage: UNK

REACTIONS (4)
  - Systemic lupus erythematosus [Unknown]
  - Dyspnoea [Unknown]
  - Chest discomfort [Unknown]
  - Stridor [Unknown]

NARRATIVE: CASE EVENT DATE: 201710
